FAERS Safety Report 6361205-6 (Version None)
Quarter: 2009Q3

REPORT INFORMATION
  Report Type: 
  Country: None (occurrence: None)
  Receive Date: 20090918
  Receipt Date: 20090918
  Transmission Date: 20100115
  Serious: Yes (Death, Other)
  Sender: FDA-Public Use
  Company Number: US-ROXANE LABORATORIES, INC.-2009-DE-05634GD

PATIENT
  Age: 35 Year
  Sex: Male

DRUGS (4)
  1. SERTRALINE HCL [Suspect]
  2. METHADONE HYDROCHLORIDE [Suspect]
     Indication: PAIN
     Dosage: 200 MG
     Route: 048
  3. METHADONE HYDROCHLORIDE [Suspect]
     Dosage: 20 MG
     Route: 048
  4. VENLAFAXINE HCL [Suspect]

REACTIONS (9)
  - ASPIRATION [None]
  - CIRCULATORY COLLAPSE [None]
  - COLLAPSE OF LUNG [None]
  - DRUG INTERACTION [None]
  - DRUG TOXICITY [None]
  - INTENTIONAL OVERDOSE [None]
  - LOSS OF CONSCIOUSNESS [None]
  - SEROTONIN SYNDROME [None]
  - SUICIDE ATTEMPT [None]
